FAERS Safety Report 8072378-1 (Version None)
Quarter: 2011Q4

REPORT INFORMATION
  Report Type: 
  Country: None (occurrence: None)
  Receive Date: 20111222
  Receipt Date: 20111104
  Transmission Date: 20120403
  Serious: Yes (Hospitalization)
  Sender: FDA-Public Use
  Company Number: UTC-011582

PATIENT
  Age: 49 Year
  Sex: Female
  Weight: 71.82 kg

DRUGS (3)
  1. DIURETICS (DIURETICS) [Concomitant]
  2. REVATIO [Concomitant]
  3. TYVASO [Suspect]
     Indication: COR PULMONALE CHRONIC
     Dosage: 6-54 MICROGRAMS (4 IN 1 D), INHALATION
     Route: 055
     Dates: start: 20110217

REACTIONS (2)
  - HYPONATRAEMIA [None]
  - DELIRIUM [None]
